FAERS Safety Report 4288614-3 (Version None)
Quarter: 2004Q1

REPORT INFORMATION
  Report Type: 
  Country: None (occurrence: None)
  Receive Date: 20040205
  Receipt Date: 20040128
  Transmission Date: 20041129
  Serious: Yes (Hospitalization)
  Sender: FDA-Public Use
  Company Number: 2004006016

PATIENT
  Age: 78 Year
  Sex: Female

DRUGS (7)
  1. NORVASC [Suspect]
     Indication: HYPERTENSION
     Dosage: 2.5 MG ORAL
     Route: 048
     Dates: end: 20040127
  2. PRAVASTATIN SODIUM [Suspect]
     Indication: ILL-DEFINED DISORDER
     Dosage: 10 MG ORAL
     Route: 048
  3. MECOBALAMIN (MECOBALAMIN) [Suspect]
     Indication: ILL-DEFINED DISORDER
     Dosage: 1.5 MG ORAL
     Route: 048
  4. PHENOBARBITAL TAB [Suspect]
     Indication: ILL-DEFINED DISORDER
     Dosage: 90 MG ORAL
     Route: 048
  5. CIMETIDINE [Concomitant]
  6. BUFFERIN [Concomitant]
  7. DONEPEZIL HCL [Concomitant]

REACTIONS (2)
  - CEREBRAL HAEMORRHAGE [None]
  - LOSS OF CONSCIOUSNESS [None]
